FAERS Safety Report 20000944 (Version 1)
Quarter: 2021Q4

REPORT INFORMATION
  Report Type: Spontaneous
  Country: US (occurrence: US)
  Receive Date: 20211026
  Receipt Date: 20211026
  Transmission Date: 20220303
  Serious: Yes (Death)
  Sender: FDA-Public Use
  Company Number: None

PATIENT
  Age: 53 Year
  Sex: Female
  Weight: 80.29 kg

DRUGS (7)
  1. DEFERASIROX [Suspect]
     Active Substance: DEFERASIROX
     Indication: Anaemia
     Route: 048
     Dates: start: 20201105
  2. DEFERASIROX [Suspect]
     Active Substance: DEFERASIROX
     Indication: Haemochromatosis
  3. FOLIC ACID [Concomitant]
     Active Substance: FOLIC ACID
  4. ACETAMINOPHEN\HYDROCODONE [Concomitant]
     Active Substance: ACETAMINOPHEN\HYDROCODONE
  5. HYDROXYUREA [Concomitant]
     Active Substance: HYDROXYUREA
  6. SERTRALINE [Concomitant]
     Active Substance: SERTRALINE HYDROCHLORIDE
  7. ZOFRAN [Concomitant]
     Active Substance: ONDANSETRON HYDROCHLORIDE

REACTIONS (1)
  - Death [None]
